FAERS Safety Report 6650072-9 (Version None)
Quarter: 2010Q1

REPORT INFORMATION
  Report Type: 
  Country: None (occurrence: None)
  Receive Date: 20100325
  Receipt Date: 20100317
  Transmission Date: 20100710
  Serious: Yes (Hospitalization)
  Sender: FDA-Public Use
  Company Number: JP-ABBOTT-10P-087-0629370-00

PATIENT
  Sex: Female
  Weight: 50 kg

DRUGS (13)
  1. HUMIRA [Suspect]
     Indication: RHEUMATOID ARTHRITIS
     Route: 058
     Dates: start: 20090901, end: 20100112
  2. TACROLIMUS [Suspect]
     Indication: RHEUMATOID ARTHRITIS
     Dates: end: 20091025
  3. TACROLIMUS [Suspect]
     Dates: start: 20091026, end: 20100112
  4. ISONIAZID [Concomitant]
     Indication: ANTIBIOTIC PROPHYLAXIS
     Route: 048
  5. MIZORIBINE [Concomitant]
     Indication: RHEUMATOID ARTHRITIS
     Dates: start: 20090901, end: 20100112
  6. PREDNISOLONE [Concomitant]
     Indication: RHEUMATOID ARTHRITIS
     Route: 048
     Dates: end: 20090928
  7. PREDNISOLONE [Concomitant]
     Route: 048
     Dates: start: 20090929, end: 20091019
  8. PREDNISOLONE [Concomitant]
     Route: 048
     Dates: start: 20091020, end: 20091025
  9. PREDNISOLONE [Concomitant]
     Route: 048
     Dates: start: 20091026, end: 20091111
  10. PREDNISOLONE [Concomitant]
     Route: 048
     Dates: start: 20091102, end: 20091108
  11. PREDNISOLONE [Concomitant]
     Route: 048
     Dates: start: 20091109, end: 20091115
  12. PREDNISOLONE [Concomitant]
     Route: 048
     Dates: start: 20091116, end: 20091128
  13. PREDNISOLONE [Concomitant]
     Route: 048
     Dates: start: 20091129, end: 20100112

REACTIONS (1)
  - BLOOD GLUCOSE INCREASED [None]
